FAERS Safety Report 4500847-7 (Version None)
Quarter: 2004Q4

REPORT INFORMATION
  Report Type: 
  Country: None (occurrence: None)
  Receive Date: 20041115
  Receipt Date: 20041109
  Transmission Date: 20050328
  Serious: Yes (Death, Life-Threatening, Hospitalization)
  Sender: FDA-Public Use
  Company Number: US-MERCK-0411USA01681

PATIENT
  Age: 86 Year
  Sex: Female

DRUGS (3)
  1. VIOXX [Suspect]
     Indication: ARTHRITIS
     Route: 048
  2. FOSAMAX [Concomitant]
     Route: 048
  3. SYNTHROID [Concomitant]
     Route: 065

REACTIONS (5)
  - CEREBROVASCULAR ACCIDENT [None]
  - DEHYDRATION [None]
  - GASTROENTERITIS SALMONELLA [None]
  - MYOCARDIAL INFARCTION [None]
  - RENAL FAILURE [None]
